FAERS Safety Report 18209120 (Version 1)
Quarter: 2020Q3

REPORT INFORMATION
  Report Type: Report from Study
  Country: ZA (occurrence: ZA)
  Receive Date: 20200828
  Receipt Date: 20200828
  Transmission Date: 20201103
  Serious: Yes (Life-Threatening, Hospitalization, Other)
  Sender: FDA-Public Use
  Company Number: NVSC2020ZA233535

PATIENT
  Age: 81 Year
  Sex: Male

DRUGS (1)
  1. EXFORGE [Suspect]
     Active Substance: AMLODIPINE BESYLATE\VALSARTAN
     Indication: CARDIAC FAILURE
     Dosage: 160 MG
     Route: 048

REACTIONS (4)
  - Ejection fraction decreased [Unknown]
  - Dyspnoea [Unknown]
  - Oedema [Unknown]
  - Cardiac failure [Unknown]
